FAERS Safety Report 24005234 (Version 1)
Quarter: 2024Q2

REPORT INFORMATION
  Report Type: Spontaneous
  Country: US (occurrence: None)
  Receive Date: 20240621
  Receipt Date: 20240621
  Transmission Date: 20240716
  Serious: Yes (Death, Hospitalization)
  Sender: FDA-Public Use
  Company Number: None

PATIENT
  Age: 72 Year
  Sex: Female

DRUGS (1)
  1. CEFEPIME [Suspect]
     Active Substance: CEFEPIME HYDROCHLORIDE
     Indication: Infected fistula
     Dates: end: 20240616

REACTIONS (6)
  - Incorrect dose administered [None]
  - Cardiac arrest [None]
  - Coma [None]
  - Dialysis [None]
  - Mental status changes [None]
  - Tremor [None]

NARRATIVE: CASE EVENT DATE: 20230608
